FAERS Safety Report 8489395-X (Version None)
Quarter: 2012Q3

REPORT INFORMATION
  Report Type: 
  Country: None (occurrence: None)
  Receive Date: 20120705
  Receipt Date: 20120622
  Transmission Date: 20120928
  Serious: Yes (Other)
  Sender: FDA-Public Use
  Company Number: DE-BRISTOL-MYERS SQUIBB COMPANY-16738593

PATIENT
  Sex: Male
  Weight: 3 kg

DRUGS (1)
  1. ABILIFY [Suspect]
     Dosage: INTERRUPTED :FEB2007 RESTARTED:AUG07 15MG/DAY IN 2008

REACTIONS (1)
  - BETA HAEMOLYTIC STREPTOCOCCAL INFECTION [None]
